FAERS Safety Report 13644314 (Version 1)
Quarter: 2017Q2

REPORT INFORMATION
  Report Type: Spontaneous
  Country: US (occurrence: US)
  Receive Date: 20170612
  Receipt Date: 20170612
  Transmission Date: 20170830
  Serious: No
  Sender: FDA-Public Use
  Company Number: US-ROCHE-1176278

PATIENT
  Age: 90 Year
  Sex: Male

DRUGS (6)
  1. CLONAZEPAM. [Suspect]
     Active Substance: CLONAZEPAM
     Indication: MYOCLONUS
     Route: 065
  2. DIGOXIN-SPECIFIC ANTIBODY FRAGMENTS [Concomitant]
     Active Substance: DIGOXIN
     Route: 065
  3. AMIODARONE [Concomitant]
     Active Substance: AMIODARONE
     Route: 065
  4. AMIODARONE [Concomitant]
     Active Substance: AMIODARONE
     Dosage: HIGHER DOSE
     Route: 065
  5. AMIODARONE [Concomitant]
     Active Substance: AMIODARONE
     Indication: MYOCLONUS
     Route: 065
  6. AMIODARONE [Concomitant]
     Active Substance: AMIODARONE
     Route: 065

REACTIONS (1)
  - Somnolence [Unknown]
